FAERS Safety Report 9008426 (Version 1)
Quarter: 2013Q1

REPORT INFORMATION
  Report Type: Spontaneous
  Country: NL (occurrence: NL)
  Receive Date: 20130111
  Receipt Date: 20130111
  Transmission Date: 20140127
  Serious: Yes (Death)
  Sender: FDA-Public Use
  Company Number: PHHY2013NL002061

PATIENT
  Sex: Female

DRUGS (4)
  1. ZOMETA [Suspect]
     Indication: BREAST CANCER METASTATIC
     Dosage: 4 MG PER 100 ML; 1X PER 28 DAYS
  2. ZOMETA [Suspect]
     Dosage: 4 MG PER 100 ML; 1X PER 28 DAYS
     Dates: start: 20100901
  3. ZOMETA [Suspect]
     Dosage: 4 MG PER 100 ML; 1X PER 28 DAYS
     Dates: start: 20121019
  4. ZOMETA [Suspect]
     Dosage: 4 MG PER 100 ML; 1X PER 28 DAYS
     Dates: start: 20121119

REACTIONS (1)
  - General physical health deterioration [Fatal]
